FAERS Safety Report 6426046-X (Version None)
Quarter: 2009Q4

REPORT INFORMATION
  Report Type: 
  Country: None (occurrence: None)
  Receive Date: 20091104
  Receipt Date: 20091026
  Transmission Date: 20100525
  Serious: Yes (Hospitalization)
  Sender: FDA-Public Use
  Company Number: US-BIOGENIDEC-2009BI032727

PATIENT
  Age: 38 Year
  Sex: Male
  Weight: 114 kg

DRUGS (9)
  1. TYSABRI [Suspect]
     Indication: MULTIPLE SCLEROSIS
     Route: 042
     Dates: start: 20070131, end: 20080509
  2. TYSABRI [Suspect]
     Route: 042
     Dates: start: 20080922
  3. PROVIGIL [Concomitant]
     Indication: FATIGUE
     Route: 048
  4. NEXIUM [Concomitant]
     Indication: GASTROOESOPHAGEAL REFLUX DISEASE
  5. ARICEPT [Concomitant]
     Indication: COGNITIVE DISORDER
  6. AMANTADINE [Concomitant]
     Indication: FATIGUE
  7. PROZAC [Concomitant]
     Indication: DEPRESSION
  8. TRAZODONE [Concomitant]
     Indication: SLEEP DISORDER
  9. TYLENOL [Concomitant]
     Indication: HEADACHE

REACTIONS (2)
  - FATIGUE [None]
  - MULTIPLE SCLEROSIS RELAPSE [None]
